FAERS Safety Report 9526128 (Version 1)
Quarter: 2013Q3

REPORT INFORMATION
  Report Type: Spontaneous
  Country: CO (occurrence: CO)
  Receive Date: 20130916
  Receipt Date: 20130916
  Transmission Date: 20140515
  Serious: Yes (Hospitalization, Other)
  Sender: FDA-Public Use
  Company Number: CO-JNJFOC-20130906595

PATIENT
  Sex: Male

DRUGS (1)
  1. RISPERDAL CONSTA [Suspect]
     Indication: SCHIZOPHRENIA
     Route: 030
     Dates: start: 20130207

REACTIONS (4)
  - Convulsion [Recovered/Resolved]
  - Syncope [Recovered/Resolved]
  - VIIth nerve paralysis [Recovered/Resolved]
  - Abdominal pain [Recovered/Resolved]
